FAERS Safety Report 23895469 (Version 1)
Quarter: 2024Q2

REPORT INFORMATION
  Report Type: Spontaneous
  Country: MT (occurrence: MT)
  Receive Date: 20240524
  Receipt Date: 20240524
  Transmission Date: 20240715
  Serious: Yes (Other)
  Sender: FDA-Public Use
  Company Number: MT-SUN PHARMACEUTICAL INDUSTRIES LTD-2024R1-447422

PATIENT
  Age: 70 Year
  Sex: Male

DRUGS (1)
  1. SUNITINIB [Suspect]
     Active Substance: SUNITINIB
     Indication: Chemotherapy
     Dosage: 37.5 MILLIGRAM
     Route: 065

REACTIONS (2)
  - Disease progression [Unknown]
  - Hypothyroidism [Unknown]
